FAERS Safety Report 24566175 (Version 1)
Quarter: 2024Q4

REPORT INFORMATION
  Report Type: Spontaneous
  Country: US (occurrence: US)
  Receive Date: 20241030
  Receipt Date: 20241030
  Transmission Date: 20250114
  Serious: Yes (Other)
  Sender: BRISTOL-MYERS SQUIBB COMPANY
  Company Number: US-BRISTOL-MYERS SQUIBB COMPANY-2024-168371

PATIENT
  Age: 81 Year
  Sex: Female

DRUGS (2)
  1. INREBIC [Suspect]
     Active Substance: FEDRATINIB HYDROCHLORIDE
     Indication: Product used for unknown indication
     Dosage: TAKE 3 CAPSULES BY MOUTH EVERY DAY
     Route: 048
  2. INREBIC [Suspect]
     Active Substance: FEDRATINIB HYDROCHLORIDE
     Dosage: TAKE 2 PILLS IN THE MORNING AND 2 AT NIGHT
     Route: 048

REACTIONS (8)
  - Illness [Unknown]
  - Nausea [Unknown]
  - Diarrhoea [Unknown]
  - Abdominal discomfort [Unknown]
  - Vomiting [Unknown]
  - Lip and/or oral cavity cancer [Unknown]
  - Pneumonia [Unknown]
  - Spleen disorder [Unknown]

NARRATIVE: CASE EVENT DATE: 20241021
